FAERS Safety Report 7188119-6 (Version None)
Quarter: 2010Q4

REPORT INFORMATION
  Report Type: 
  Country: None (occurrence: None)
  Receive Date: 20101222
  Receipt Date: 20101222
  Transmission Date: 20110411
  Serious: Yes (Other)
  Sender: FDA-Public Use
  Company Number: US-PFIZER INC-US-WYE-H17009310

PATIENT
  Sex: Male
  Weight: 127 kg

DRUGS (13)
  1. PROTONIX [Suspect]
     Indication: APHAGIA
     Dosage: UNK
     Route: 065
     Dates: start: 20090101, end: 20100801
  2. ACETYLSALICYLIC ACID [Concomitant]
     Route: 065
  3. BUPROPION [Concomitant]
     Route: 065
  4. VALIUM [Concomitant]
     Route: 065
  5. FENOFIBRATE [Concomitant]
     Route: 065
  6. FLUVOXAMINE [Concomitant]
     Route: 065
  7. GLIPIZIDE [Concomitant]
     Route: 065
  8. LISINOPRIL [Concomitant]
     Route: 065
  9. METFORMIN [Concomitant]
     Route: 065
  10. RANITIDINE [Concomitant]
     Route: 065
  11. SIMVASTATIN [Concomitant]
     Route: 065
  12. VICODIN [Concomitant]
     Route: 065
  13. VITAMINS [Concomitant]
     Route: 065

REACTIONS (3)
  - BACK DISORDER [None]
  - CONDITION AGGRAVATED [None]
  - DIABETES MELLITUS [None]
